FAERS Safety Report 4870917-2 (Version None)
Quarter: 2006Q1

REPORT INFORMATION
  Report Type: 
  Country: None (occurrence: None)
  Receive Date: 20060103
  Receipt Date: 20051223
  Transmission Date: 20060701
  Serious: Yes (Life-Threatening)
  Sender: FDA-Public Use
  Company Number: ES-BRISTOL-MYERS SQUIBB COMPANY-13227764

PATIENT
  Age: 48 Year
  Sex: Female
  Weight: 40 kg

DRUGS (3)
  1. VIDEX [Suspect]
     Indication: HIV INFECTION
     Route: 048
     Dates: start: 20020722
  2. VIREAD [Suspect]
     Indication: HIV INFECTION
     Route: 048
     Dates: start: 20020722
  3. KALETRA [Concomitant]
     Indication: HIV INFECTION
     Dates: start: 20020722

REACTIONS (4)
  - ALBUMINURIA [None]
  - HYPERGLYCAEMIA [None]
  - HYPOPHOSPHATAEMIA [None]
  - LACTIC ACIDOSIS [None]
